FAERS Safety Report 4524461-2 (Version None)
Quarter: 2004Q4

REPORT INFORMATION
  Report Type: 
  Country: None (occurrence: None)
  Receive Date: 20041116
  Receipt Date: 20041012
  Transmission Date: 20050328
  Serious: No
  Sender: FDA-Public Use
  Company Number: PHEH2004US11027

PATIENT
  Age: 36 Year
  Sex: Male

DRUGS (1)
  1. GLEEVEC [Suspect]
     Indication: CHRONIC MYELOID LEUKAEMIA
     Dosage: 400 MG, QD, ORAL
     Route: 048
     Dates: start: 20040901

REACTIONS (6)
  - MUSCLE CRAMP [None]
  - MYALGIA [None]
  - NAUSEA [None]
  - PERIORBITAL OEDEMA [None]
  - RASH [None]
  - UNEXPECTED THERAPEUTIC DRUG EFFECT [None]
